FAERS Safety Report 6944484-3 (Version None)
Quarter: 2010Q3

REPORT INFORMATION
  Report Type: 
  Country: None (occurrence: None)
  Receive Date: 20100827
  Receipt Date: 20100818
  Transmission Date: 20110219
  Serious: Yes (Other)
  Sender: FDA-Public Use
  Company Number: AU-PFIZER INC-2010104174

PATIENT
  Sex: Female

DRUGS (1)
  1. CHAMPIX [Suspect]
     Dosage: UNK
     Dates: end: 20100816

REACTIONS (5)
  - APATHY [None]
  - FLAT AFFECT [None]
  - LIBIDO DECREASED [None]
  - MOOD ALTERED [None]
  - NAUSEA [None]
